FAERS Safety Report 6640682-7 (Version None)
Quarter: 2010Q1

REPORT INFORMATION
  Report Type: 
  Country: None (occurrence: None)
  Receive Date: 20100302
  Receipt Date: 20091201
  Transmission Date: 20100710
  Serious: No
  Sender: FDA-Public Use
  Company Number: 2009304889

PATIENT
  Age: 69 Year
  Sex: Male
  Weight: 102 kg

DRUGS (4)
  1. TOVIAZ [Suspect]
     Indication: POLLAKIURIA
     Dosage: 8 MG, DAILY, ORAL
     Route: 048
     Dates: start: 20091101, end: 20091101
  2. DORZOLAMIDE [Concomitant]
  3. BRIMONIDINE TARTRATE [Concomitant]
  4. TRAVATAN [Concomitant]

REACTIONS (2)
  - CONSTIPATION [None]
  - OCULAR HYPERAEMIA [None]
